FAERS Safety Report 9517442 (Version 4)
Quarter: 2013Q4

REPORT INFORMATION
  Report Type: Spontaneous
  Country: JP (occurrence: JP)
  Receive Date: 20130911
  Receipt Date: 20131205
  Transmission Date: 20140711
  Serious: Yes (Hospitalization, Other)
  Sender: FDA-Public Use
  Company Number: JP-TAKEDA-TCI2013A04392

PATIENT
  Age: 85 Year
  Sex: Female
  Weight: 46 kg

DRUGS (11)
  1. ROZEREM TABLETS 8MG [Suspect]
     Indication: INSOMNIA
     Dosage: 8 MG, QD
     Route: 048
     Dates: start: 20130322, end: 20130625
  2. AVAPRO [Concomitant]
     Indication: HYPERTENSION
     Dosage: 50 MG, QD
     Route: 048
     Dates: start: 201210, end: 20130110
  3. AVAPRO [Concomitant]
     Dosage: 100 MG, QD
     Route: 048
     Dates: start: 20130111
  4. AMLODIPINE [Concomitant]
     Indication: HYPERTENSION
     Dosage: 2.5 MG, QD
     Route: 048
     Dates: start: 20130111
  5. CARVEDILOL [Concomitant]
     Indication: HYPERTENSION
     Dosage: 5 MG, QD
     Route: 048
     Dates: start: 20130111
  6. SELARA [Concomitant]
     Indication: HYPERTENSION
     Dosage: 25 MG, QD
     Route: 048
     Dates: start: 20130111
  7. TOYOFAROL [Concomitant]
     Indication: OSTEOPOROSIS
     Dosage: 0.5 ?G, QD
     Route: 048
     Dates: start: 20130111
  8. GASTER                             /00706001/ [Concomitant]
     Indication: GASTRITIS
     Dosage: 10 MG, QD
     Route: 065
     Dates: start: 20130111
  9. ERISPAN [Concomitant]
     Indication: ANXIETY
     Route: 048
     Dates: start: 20130322, end: 20130401
  10. ERISPAN [Concomitant]
     Indication: ANXIETY
  11. NEUROTROPIN [Concomitant]
     Dosage: UNK
     Route: 065
     Dates: start: 201010

REACTIONS (1)
  - Drug-induced liver injury [Recovered/Resolved with Sequelae]
